FAERS Safety Report 4556568-8 (Version None)
Quarter: 2005Q1

REPORT INFORMATION
  Report Type: 
  Country: None (occurrence: None)
  Receive Date: 20050114
  Receipt Date: 20040917
  Transmission Date: 20050727
  Serious: Yes (Life-Threatening, Hospitalization)
  Sender: FDA-Public Use
  Company Number: 0002812

PATIENT
  Age: 10 Year
  Sex: Male
  Weight: 34.5 kg

DRUGS (6)
  1. INTRALIPID 20% [Suspect]
     Indication: GASTROSCHISIS
     Dosage: 300 M1/ 1 DAILY/ INTRAVENOUS IN
     Route: 042
     Dates: start: 19971001, end: 20040915
  2. DEXTROSE [Concomitant]
  3. TRAVASOL [Concomitant]
  4. MULTI-VITAMINS [Concomitant]
  5. HEPARIN [Concomitant]
  6. LEVOCARNITINE [Concomitant]

REACTIONS (5)
  - BILIRUBIN CONJUGATED INCREASED [None]
  - BLOOD BILIRUBIN INCREASED [None]
  - HAEMATOCHEZIA [None]
  - INTESTINAL OBSTRUCTION [None]
  - JAUNDICE [None]
